FAERS Safety Report 17160730 (Version 1)
Quarter: 2019Q4

REPORT INFORMATION
  Report Type: Spontaneous
  Country: CN (occurrence: CN)
  Receive Date: 20191216
  Receipt Date: 20191216
  Transmission Date: 20200122
  Serious: Yes (Other)
  Sender: FDA-Public Use
  Company Number: CN-BAYER-2019-221993

PATIENT
  Age: 55 Year
  Sex: Male
  Weight: 71 kg

DRUGS (2)
  1. SITAGLIPTIN PHOSPHATE [Suspect]
     Active Substance: SITAGLIPTIN PHOSPHATE
     Indication: DIABETIC VASCULAR DISORDER
     Dosage: 100 MG, QD
     Route: 048
     Dates: start: 20191121, end: 20191122
  2. GLUCOBAY [Suspect]
     Active Substance: ACARBOSE
     Indication: DIABETIC VASCULAR DISORDER
     Dosage: 0.1 G, TID
     Route: 048
     Dates: start: 20191120, end: 20191122

REACTIONS (6)
  - Erythema [Recovering/Resolving]
  - Angioedema [Recovering/Resolving]
  - Eyelid oedema [Recovering/Resolving]
  - Erythema of eyelid [Recovering/Resolving]
  - Rash papular [Recovering/Resolving]
  - Swelling face [Recovering/Resolving]

NARRATIVE: CASE EVENT DATE: 20191122
